FAERS Safety Report 5224241-9 (Version None)
Quarter: 2007Q1

REPORT INFORMATION
  Report Type: 
  Country: None (occurrence: None)
  Receive Date: 20070130
  Receipt Date: 20070115
  Transmission Date: 20070707
  Serious: Yes (Hospitalization)
  Sender: FDA-Public Use
  Company Number: US-SHR-US-2006-033715

PATIENT
  Age: 76 Year
  Sex: Female
  Weight: 57.596 kg

DRUGS (8)
  1. BETASERON [Suspect]
     Indication: RELAPSING-REMITTING MULTIPLE SCLEROSIS
     Route: 058
     Dates: start: 20030927, end: 20050923
  2. BETASERON [Suspect]
     Route: 058
     Dates: start: 20051127, end: 20060203
  3. BETASERON [Suspect]
     Dosage: 8 MIU, EVERY 2D
     Route: 058
     Dates: start: 20060501
  4. LEVOTHYROXINE SODIUM [Concomitant]
     Dosage: 75 MG, UNK
  5. PREMARIN [Concomitant]
     Dosage: .62 MG, UNK
  6. EFFEXOR XR [Concomitant]
     Dosage: 150 MG, UNK
  7. LISINOPRIL [Concomitant]
     Dosage: 40 MG, UNK
  8. CITALOPRAM HYDROBROMIDE [Concomitant]
     Dosage: 20 MG, UNK

REACTIONS (11)
  - ABDOMINAL PAIN [None]
  - ASTHENIA [None]
  - BALANCE DISORDER [None]
  - CHOLELITHIASIS [None]
  - DIZZINESS [None]
  - FALL [None]
  - MUSCLE HAEMORRHAGE [None]
  - PAIN [None]
  - PALLOR [None]
  - RASH [None]
  - URINARY TRACT INFECTION BACTERIAL [None]
